FAERS Safety Report 9121965 (Version 3)
Quarter: 2013Q2

REPORT INFORMATION
  Report Type: Spontaneous
  Country: US (occurrence: US)
  Receive Date: 20130114
  Receipt Date: 20130506
  Transmission Date: 20140414
  Serious: Yes (Disabling)
  Sender: FDA-Public Use
  Company Number: US-009507513-1301USA004592

PATIENT
  Age: 19 Year
  Sex: Male

DRUGS (1)
  1. PROPECIA [Suspect]
     Indication: ANDROGENETIC ALOPECIA
     Dosage: 1 MG, QD
     Route: 048
     Dates: start: 200909, end: 201110

REACTIONS (10)
  - Cognitive disorder [Not Recovered/Not Resolved]
  - Libido decreased [Unknown]
  - Erectile dysfunction [Not Recovered/Not Resolved]
  - Semen volume decreased [Unknown]
  - Ejaculation disorder [Unknown]
  - Fatigue [Unknown]
  - Depression [Not Recovered/Not Resolved]
  - Anxiety [Not Recovered/Not Resolved]
  - Amnesia [Unknown]
  - Sexual dysfunction [Not Recovered/Not Resolved]
